FAERS Safety Report 5136976-7 (Version None)
Quarter: 2006Q4

REPORT INFORMATION
  Report Type: 
  Country: None (occurrence: None)
  Receive Date: 20061030
  Receipt Date: 20061019
  Transmission Date: 20070319
  Serious: Yes (Hospitalization)
  Sender: FDA-Public Use
  Company Number: US-JNJFOC-20061005362

PATIENT
  Sex: Male
  Weight: 89.81 kg

DRUGS (2)
  1. REMICADE [Suspect]
     Indication: COLITIS ULCERATIVE
     Dosage: DOSAGE = 5 VIALS
     Route: 042
  2. SULFASALAZINE [Concomitant]
     Dosage: TAKEN FOR 3 MONTHS OR LESS

REACTIONS (1)
  - INTESTINAL OPERATION [None]
